FAERS Safety Report 6946400-7 (Version None)
Quarter: 2010Q3

REPORT INFORMATION
  Report Type: 
  Country: None (occurrence: None)
  Receive Date: 20100827
  Receipt Date: 20100816
  Transmission Date: 20110219
  Serious: Yes (Hospitalization)
  Sender: FDA-Public Use
  Company Number: ES-ELI_LILLY_AND_COMPANY-ES201008004868

PATIENT
  Sex: Male
  Weight: 93 kg

DRUGS (8)
  1. FORTEO [Suspect]
     Indication: OSTEOPOROSIS
     Dosage: 20 UG, DAILY (1/D)
     Route: 058
     Dates: start: 20100803
  2. SINTROM [Concomitant]
     Indication: ANTICOAGULANT THERAPY
     Dosage: UNK, 1/2 OR 1/4 PER DAY
     Route: 048
  3. DINISOR [Concomitant]
     Indication: HYPERTENSION
     Dosage: 1 D/F, DAILY (1/D)
     Route: 048
  4. HIDROSALURETIL [Concomitant]
     Indication: HYPERTENSION
     Dosage: 1 D/F, DAILY (1/D)
     Route: 048
  5. UROLOSIN [Concomitant]
     Indication: PROSTATE CANCER
     Dosage: 1 D/F, DAILY (1/D)
     Route: 048
  6. THEO-DUR [Concomitant]
     Indication: ASTHMA
     Dosage: 200 MG, 2/D
     Route: 048
  7. GELOCATIL [Concomitant]
     Indication: PAIN
     Dosage: 1 D/F, 2/D
     Route: 048
  8. NOLOTIL [Concomitant]
     Indication: PAIN
     Dosage: 1 D/F, 2/D
     Route: 048

REACTIONS (1)
  - CHRONIC OBSTRUCTIVE PULMONARY DISEASE [None]
